FAERS Safety Report 5419241-X (Version None)
Quarter: 2007Q3

REPORT INFORMATION
  Report Type: 
  Country: None (occurrence: None)
  Receive Date: 20070816
  Receipt Date: 20070816
  Transmission Date: 20080115
  Serious: Yes (Hospitalization)
  Sender: FDA-Public Use
  Company Number: None

PATIENT
  Age: 75 Year
  Sex: Male
  Weight: 68 kg

DRUGS (2)
  1. SELEGILINE HYDROCHLORIDE [Suspect]
     Indication: PARKINSON'S DISEASE
     Dosage: 5MG BID PARKINSONS PO
     Route: 048
  2. TRAMADOL HCL [Suspect]
     Indication: PAIN
     Dosage: 50-100MG QID PRN PO
     Route: 048
     Dates: start: 20070726

REACTIONS (3)
  - AGITATION [None]
  - CONVULSION [None]
  - DRUG INTERACTION [None]
